FAERS Safety Report 4730162-8 (Version None)
Quarter: 2005Q3

REPORT INFORMATION
  Report Type: 
  Country: None (occurrence: None)
  Receive Date: 20050729
  Receipt Date: 20050729
  Transmission Date: 20060218
  Serious: Yes (Hospitalization, Other)
  Sender: FDA-Public Use
  Company Number: None

PATIENT
  Sex: Male
  Weight: 124 kg

DRUGS (10)
  1. CYTOXAN [Suspect]
     Indication: MULTIPLE MYELOMA
     Dosage: SEE IMAGE
     Route: 042
     Dates: start: 20050221
  2. MELPHALAN [Suspect]
     Dosage: SEE IMAGE
     Route: 042
     Dates: start: 20040221
  3. ALLOGENEIC TRANSPLANT TISSUE [Suspect]
     Dosage: SEE IMAGE
  4. FLUDARABINE [Suspect]
     Dosage: SEE IMAGE
     Route: 042
     Dates: start: 20050221, end: 20050225
  5. CYCLOPHOSPHAMIDE [Suspect]
     Dosage: SEE IMAGE
     Route: 042
     Dates: start: 20050224, end: 20050225
  6. CYCLOPHOSPHAMIDE [Suspect]
     Dosage: SEE IMAGE
     Route: 042
     Dates: start: 20050221
  7. METHOTREXATE [Suspect]
     Dosage: SEE IMAGE
     Dates: start: 20050302, end: 20050307
  8. METHOTREXATE [Suspect]
     Dosage: SEE IMAGE
     Dates: start: 20050221
  9. G-CSF [Suspect]
     Dosage: SEE IMAGE
     Dates: start: 20050308, end: 20050313
  10. G-CSF [Suspect]
     Dosage: SEE IMAGE
     Dates: start: 20050221

REACTIONS (6)
  - EOSINOPHILIA [None]
  - GRAFT VERSUS HOST DISEASE [None]
  - LUNG INFILTRATION [None]
  - OBLITERATIVE BRONCHIOLITIS [None]
  - PNEUMONIA [None]
  - RASH [None]
